FAERS Safety Report 4667615-7 (Version None)
Quarter: 2005Q2

REPORT INFORMATION
  Report Type: 
  Country: None (occurrence: None)
  Receive Date: 20050502
  Receipt Date: 20040512
  Transmission Date: 20051028
  Serious: Yes (Other)
  Sender: FDA-Public Use
  Company Number: PHEH2004US05228

PATIENT
  Age: 42 Year
  Sex: Male

DRUGS (4)
  1. LOTREL [Suspect]
     Indication: HYPERTENSION
     Dosage: ONE CAPSULE DAILY, ORAL
     Route: 048
     Dates: start: 20020101
  2. LASIX (FUROSEMIDE, FUROSEMIDE SODIUM) [Concomitant]
  3. LIPITOR [Concomitant]
  4. CENTRUM (MINERALS NOS, VITAMINS NOS) [Concomitant]

REACTIONS (6)
  - CONDITION AGGRAVATED [None]
  - COUGH [None]
  - HEADACHE [None]
  - INCREASED UPPER AIRWAY SECRETION [None]
  - OEDEMA PERIPHERAL [None]
  - RENAL FAILURE [None]
